FAERS Safety Report 15270712 (Version 2)
Quarter: 2019Q4

REPORT INFORMATION
  Report Type: Report from Study
  Country: US (occurrence: US)
  Receive Date: 20180813
  Receipt Date: 20191202
  Transmission Date: 20200122
  Serious: Yes (Death, Other)
  Sender: FDA-Public Use
  Company Number: US-SA-2018SA216631

PATIENT
  Age: 73 Year
  Sex: Male
  Weight: 58 kg

DRUGS (2)
  1. INSULIN GLARGINE [Suspect]
     Active Substance: INSULIN GLARGINE
     Dosage: 150 U, QD
     Route: 058
  2. INSULIN GLARGINE [Suspect]
     Active Substance: INSULIN GLARGINE
     Indication: TYPE 2 DIABETES MELLITUS
     Dosage: 135 TOTAL (AM AND PM)

REACTIONS (5)
  - Diabetes mellitus inadequate control [Recovered/Resolved]
  - Inappropriate schedule of product administration [Unknown]
  - Urinary tract infection [Recovered/Resolved]
  - Death [Fatal]
  - Blood glucose increased [Recovered/Resolved]

NARRATIVE: CASE EVENT DATE: 20180418
